FAERS Safety Report 8819323 (Version 2)
Quarter: 2013Q1

REPORT INFORMATION
  Report Type: Spontaneous
  Country: UA (occurrence: None)
  Receive Date: 20121003
  Receipt Date: 20121228
  Transmission Date: 20140127
  Serious: Yes (Hospitalization)
  Sender: FDA-Public Use
  Company Number: 2012000209

PATIENT
  Age: 65 Year
  Sex: Male

DRUGS (10)
  1. ACEON (PERINDOPRIL ERBUMINE) TABLET [Suspect]
     Indication: HYPERTENSION
     Route: 048
     Dates: start: 20120216
  2. ACEON (PERINDOPRIL ERBUMINE) TABLET [Suspect]
     Indication: CORONARY ARTERY DISEASE
     Route: 048
     Dates: start: 20120216
  3. INDAPAMIDE [Suspect]
     Indication: HYPERTENSION
     Route: 048
     Dates: start: 20120216
  4. INDAPAMIDE [Suspect]
     Indication: CORONARY ARTERY DISEASE
     Route: 048
     Dates: start: 20120216
  5. CARDIKET [Suspect]
  6. BISOPROLOL [Suspect]
     Indication: ANGINA PECTORIS
     Route: 048
     Dates: start: 20120216
  7. ASPIRINE (ACETYLSALICYLIC ACID) [Concomitant]
  8. ATORIS (ATORVASTATIN CALCIUM) [Concomitant]
  9. NITROGLYCERIN [Concomitant]
  10. INVESTIGATIONAL DRUG (IVABRADINE VS. PLACEBO) [Concomitant]

REACTIONS (3)
  - Loss of consciousness [None]
  - Fatigue [None]
  - Fall [None]
